FAERS Safety Report 11149330 (Version 1)
Quarter: 2015Q2

REPORT INFORMATION
  Report Type: Spontaneous
  Country: JP (occurrence: None)
  Receive Date: 20150527
  Receipt Date: 20150527
  Transmission Date: 20150821
  Serious: Yes (Hospitalization)
  Sender: FDA-Public Use
  Company Number: FK201502403

PATIENT
  Age: 78 Year
  Sex: Female

DRUGS (8)
  1. PIRARUBICIN (PIRARUBICIN) [Concomitant]
  2. CYCLOPHOSPHAMIDE (CYCLOPHOSPHAMIDE) [Concomitant]
     Active Substance: CYCLOPHOSPHAMIDE
  3. PREDNISOLONE (PREDNISOLONE) [Concomitant]
     Active Substance: PREDNISOLONE
  4. BUCILLAMINE (BUCCILLAMINE) [Concomitant]
  5. METHOTREXATE (MANUFACTURER UNKNOWN) (METHOTREXATE) (METHOTREXATE) [Suspect]
     Active Substance: METHOTREXATE
     Indication: RHEUMATOID ARTHRITIS
  6. VINCRISTINE (VINCRISTINE) [Concomitant]
     Active Substance: VINCRISTINE
  7. SALAZOSULFAPYRIDINE (SULFASALAZINE) [Concomitant]
  8. PREDNISOLONE (PREDNISOLONE) [Concomitant]
     Active Substance: PREDNISOLONE

REACTIONS (3)
  - Colon cancer [None]
  - Chloroma [None]
  - Neutropenic sepsis [None]
